FAERS Safety Report 14671135 (Version 1)
Quarter: 2018Q1

REPORT INFORMATION
  Report Type: Spontaneous
  Country: US (occurrence: US)
  Receive Date: 20180322
  Receipt Date: 20180322
  Transmission Date: 20180509
  Serious: No
  Sender: FDA-Public Use
  Company Number: None

PATIENT
  Age: 60 Year
  Sex: Male

DRUGS (1)
  1. ZYKADIA [Suspect]
     Active Substance: CERITINIB

REACTIONS (14)
  - Abdominal pain [None]
  - Vomiting [None]
  - Diarrhoea [None]
  - Fatigue [None]
  - Oral pain [None]
  - Treatment noncompliance [None]
  - Decreased appetite [None]
  - Cold sweat [None]
  - Pollakiuria [None]
  - Contusion [None]
  - Headache [None]
  - Dyspnoea [None]
  - Nausea [None]
  - Cholelithiasis [None]

NARRATIVE: CASE EVENT DATE: 20180321
